FAERS Safety Report 25710620 (Version 1)
Quarter: 2025Q3

REPORT INFORMATION
  Report Type: Spontaneous
  Country: US (occurrence: None)
  Receive Date: 20250820
  Receipt Date: 20250820
  Transmission Date: 20251021
  Serious: Yes (Hospitalization, Other)
  Sender: FDA-CTU
  Company Number: None

PATIENT
  Age: 42 Year
  Sex: Male
  Weight: 97 kg

DRUGS (1)
  1. HECTOROL [Suspect]
     Active Substance: DOXERCALCIFEROL
     Indication: Hyperparathyroidism secondary
     Route: 040
     Dates: start: 20250812, end: 20250816

REACTIONS (5)
  - Dialysis [None]
  - Seizure [None]
  - Dysarthria [None]
  - Confusional state [None]
  - Cardiac arrest [None]

NARRATIVE: CASE EVENT DATE: 20250816
